FAERS Safety Report 23567604 (Version 1)
Quarter: 2024Q1

REPORT INFORMATION
  Report Type: Spontaneous
  Country: PT (occurrence: PT)
  Receive Date: 20240226
  Receipt Date: 20240226
  Transmission Date: 20240410
  Serious: Yes (Other)
  Sender: FDA-Public Use
  Company Number: PT-FreseniusKabi-FK202402264

PATIENT
  Age: 31 Year
  Sex: Female

DRUGS (4)
  1. GENTAMICIN [Suspect]
     Active Substance: GENTAMICIN
     Indication: Abortion infected
     Route: 065
  2. TRANEXAMIC ACID [Suspect]
     Active Substance: TRANEXAMIC ACID
     Indication: Procedural haemorrhage
     Route: 065
  3. AMPICILLIN [Concomitant]
     Active Substance: AMPICILLIN
     Indication: Abortion infected
     Route: 065
  4. CLINDAMYCIN [Concomitant]
     Active Substance: CLINDAMYCIN
     Indication: Abortion infected

REACTIONS (1)
  - Renal cortical necrosis [Not Recovered/Not Resolved]
